FAERS Safety Report 7586125-0 (Version None)
Quarter: 2011Q2

REPORT INFORMATION
  Report Type: 
  Country: None (occurrence: None)
  Receive Date: 20110629
  Receipt Date: 20110629
  Transmission Date: 20111010
  Serious: Yes (Hospitalization)
  Sender: FDA-Public Use
  Company Number: None

PATIENT
  Age: 70 Year
  Sex: Female
  Weight: 72.1219 kg

DRUGS (1)
  1. AVELOX [Suspect]
     Indication: PNEUMONIA
     Dosage: 400 MG 1 A DAY FOR 10 DAYS
     Dates: start: 20110304, end: 20110313

REACTIONS (2)
  - HEART RATE IRREGULAR [None]
  - EXTRASYSTOLES [None]
